FAERS Safety Report 9397552 (Version 1)
Quarter: 2013Q3

REPORT INFORMATION
  Report Type: Spontaneous
  Country: US (occurrence: US)
  Receive Date: 20130712
  Receipt Date: 20130712
  Transmission Date: 20140515
  Serious: Yes (Hospitalization, Other)
  Sender: FDA-Public Use
  Company Number: US-PFIZER INC-2013203025

PATIENT
  Sex: 0

DRUGS (1)
  1. DEPO-MEDROL [Suspect]
     Dosage: 40 MG/ML 1 ML VIAL X 25
     Dates: start: 20121112

REACTIONS (1)
  - Arthritis bacterial [Recovered/Resolved]
